FAERS Safety Report 8391080-X (Version None)
Quarter: 2012Q2

REPORT INFORMATION
  Report Type: 
  Country: None (occurrence: None)
  Receive Date: 20120515
  Receipt Date: 20120510
  Transmission Date: 20120825
  Serious: Yes (Other)
  Sender: FDA-Public Use
  Company Number: 2011SP041924

PATIENT
  Age: 61 Year
  Sex: Female
  Weight: 60.5 kg

DRUGS (13)
  1. VOLTAREN [Concomitant]
  2. LEXOTAN [Concomitant]
  3. AMRZULENE S (AZULENE SULFONATE SODIUM/L-GLUTAMINE) [Concomitant]
  4. INTERFERON BETA NOS [Suspect]
     Dosage: 6 MIU;QD;IV ; 3 MIU;IV ; 6 MIU;QD;IV ; 3 MIU;QD;IV ; 6 MIU;TIW;IV
     Route: 042
     Dates: start: 20100404, end: 20100412
  5. INTERFERON BETA NOS [Suspect]
     Dosage: 6 MIU;QD;IV ; 3 MIU;IV ; 6 MIU;QD;IV ; 3 MIU;QD;IV ; 6 MIU;TIW;IV
     Route: 042
     Dates: start: 20100331, end: 20100402
  6. INTERFERON BETA NOS [Suspect]
     Dosage: 6 MIU;QD;IV ; 3 MIU;IV ; 6 MIU;QD;IV ; 3 MIU;QD;IV ; 6 MIU;TIW;IV
     Route: 042
     Dates: start: 20100413, end: 20100417
  7. INTERFERON BETA NOS [Suspect]
     Dosage: 6 MIU;QD;IV ; 3 MIU;IV ; 6 MIU;QD;IV ; 3 MIU;QD;IV ; 6 MIU;TIW;IV
     Route: 042
     Dates: start: 20100421, end: 20110808
  8. INTERFERON BETA NOS [Suspect]
     Dosage: 6 MIU;QD;IV ; 3 MIU;IV ; 6 MIU;QD;IV ; 3 MIU;QD;IV ; 6 MIU;TIW;IV
     Route: 042
     Dates: start: 20100418, end: 20100419
  9. BLADDERON [Concomitant]
  10. ZOLPIDEM [Concomitant]
  11. RIBAVIRIN [Suspect]
     Indication: HEPATITIS C
     Dosage: 400 MG;BID;PO
     Route: 048
     Dates: start: 20100324, end: 20110808
  12. INTERFERON BETA NOS [Suspect]
     Indication: HEPATITIS C
     Dosage: 6 MIU;QD;INDRP
     Route: 041
     Dates: start: 20100324, end: 20100330
  13. MELYSIN [Concomitant]

REACTIONS (2)
  - NEUTROPHIL COUNT DECREASED [None]
  - NEPHROTIC SYNDROME [None]
